FAERS Safety Report 12109358 (Version 11)
Quarter: 2017Q1

REPORT INFORMATION
  Report Type: Report from Study
  Country: BR (occurrence: BR)
  Receive Date: 20160224
  Receipt Date: 20170212
  Transmission Date: 20170428
  Serious: Yes (Life-Threatening, Hospitalization, Other)
  Sender: FDA-Public Use
  Company Number: PHHY2016BR023998

PATIENT
  Age: 73 Year
  Sex: Female
  Weight: 50 kg

DRUGS (4)
  1. SANDOSTATIN LAR DEPOT [Suspect]
     Active Substance: OCTREOTIDE ACETATE
     Indication: NEUROENDOCRINE CARCINOMA
     Dosage: 30 MG, QMO
     Route: 030
     Dates: start: 2007
  2. TRILEPTAL [Concomitant]
     Active Substance: OXCARBAZEPINE
     Indication: BIPOLAR DISORDER
     Dosage: 300 MG, QHS
     Route: 048
  3. RIVOTRIL [Concomitant]
     Active Substance: CLONAZEPAM
     Indication: BIPOLAR DISORDER
     Dosage: 1 DF, QHS
     Route: 048
  4. AMITRIPTYLINE [Concomitant]
     Active Substance: AMITRIPTYLINE
     Indication: BIPOLAR DISORDER
     Dosage: 1 DF, QD
     Route: 048

REACTIONS (21)
  - Intestinal obstruction [Unknown]
  - Application site abscess [Unknown]
  - Pyrexia [Unknown]
  - Anaemia [Unknown]
  - Mobility decreased [Unknown]
  - Furuncle [Not Recovered/Not Resolved]
  - Wrong technique in product usage process [Unknown]
  - Weight increased [Unknown]
  - Paraneoplastic syndrome [Unknown]
  - Blood chromogranin A increased [Unknown]
  - Malaise [Unknown]
  - Femur fracture [Recovering/Resolving]
  - Pelvic fracture [Recovering/Resolving]
  - Fall [Unknown]
  - Gait disturbance [Recovered/Resolved]
  - Weight decreased [Recovering/Resolving]
  - Application site hypoaesthesia [Not Recovered/Not Resolved]
  - Influenza like illness [Unknown]
  - Application site pain [Not Recovered/Not Resolved]
  - Malnutrition [Unknown]
  - Anxiety [Unknown]

NARRATIVE: CASE EVENT DATE: 201512
